FAERS Safety Report 7253210-2 (Version None)
Quarter: 2011Q1

REPORT INFORMATION
  Report Type: 
  Country: None (occurrence: None)
  Receive Date: 20110129
  Receipt Date: 20100212
  Transmission Date: 20110831
  Serious: No
  Sender: FDA-Public Use
  Company Number: US-ABBOTT-10P-163-0626545-00

PATIENT
  Age: 49 Year
  Sex: Female

DRUGS (2)
  1. HUMIRA [Suspect]
     Indication: CROHN'S DISEASE
     Dates: start: 20080101, end: 20100101
  2. TOPICAL CREAM [Concomitant]
     Indication: PSORIASIS
     Dosage: AS DIRECTED

REACTIONS (1)
  - RASH PRURITIC [None]
